FAERS Safety Report 4527751-2 (Version None)
Quarter: 2004Q4

REPORT INFORMATION
  Report Type: 
  Country: None (occurrence: None)
  Receive Date: 20041130
  Receipt Date: 20041019
  Transmission Date: 20050328
  Serious: No
  Sender: FDA-Public Use
  Company Number: WAES 0410USA03013

PATIENT
  Age: 62 Year
  Sex: Female

DRUGS (3)
  1. ZETIA [Suspect]
     Dosage: SEE IMAGE
     Route: 048
     Dates: start: 20040415, end: 20040418
  2. ZETIA [Suspect]
     Dosage: SEE IMAGE
     Route: 048
     Dates: start: 20040507, end: 20040521
  3. ZETIA [Suspect]
     Dosage: SEE IMAGE
     Route: 048
     Dates: start: 20040521, end: 20040928

REACTIONS (6)
  - ARTHRALGIA [None]
  - DIARRHOEA [None]
  - FATIGUE [None]
  - MEDICATION ERROR [None]
  - PAIN [None]
  - PAIN IN EXTREMITY [None]
